FAERS Safety Report 9246972 (Version 1)
Quarter: 2013Q2

REPORT INFORMATION
  Report Type: Spontaneous
  Country: US (occurrence: US)
  Receive Date: 20130422
  Receipt Date: 20130422
  Transmission Date: 20140414
  Serious: No
  Sender: FDA-Public Use
  Company Number: US-BAYER-2013-050137

PATIENT
  Age: 57 Year
  Sex: Female
  Weight: 73.02 kg

DRUGS (6)
  1. ALEVE CAPLET [Suspect]
     Indication: ANALGESIC THERAPY
     Dosage: 1 DF, PRN
     Route: 048
  2. BAYER ADVANCED ASPIRIN EXTRA STRENGTH [Suspect]
     Dosage: UNK
     Route: 048
     Dates: start: 201211
  3. MOTRIN [Concomitant]
  4. TYLENOL [PARACETAMOL] [Concomitant]
  5. TIZANIDINE [Concomitant]
  6. NEURONTIN [Concomitant]

REACTIONS (2)
  - Drug ineffective [None]
  - Incorrect drug administration duration [None]
